FAERS Safety Report 19508511 (Version 1)
Quarter: 2021Q3

REPORT INFORMATION
  Report Type: Spontaneous
  Country: US (occurrence: US)
  Receive Date: 20210708
  Receipt Date: 20210708
  Transmission Date: 20211014
  Serious: Yes (Other)
  Sender: FDA-Public Use
  Company Number: US-BIODELIVERY SCIENCES INTERNATIONAL-2021BDSI0235

PATIENT
  Sex: Male

DRUGS (9)
  1. COLECALCIFEROL [Concomitant]
     Active Substance: CHOLECALCIFEROL
     Indication: PRODUCT USED FOR UNKNOWN INDICATION
     Dosage: UNKNOWN, UNKNOWN
     Route: 065
  2. OXYCODONE HYDROCHLORIDE. [Concomitant]
     Active Substance: OXYCODONE HYDROCHLORIDE
     Indication: PRODUCT USED FOR UNKNOWN INDICATION
     Route: 048
  3. BUPRENORPHINE. [Suspect]
     Active Substance: BUPRENORPHINE
     Route: 002
     Dates: start: 202105
  4. BUPRENORPHINE. [Suspect]
     Active Substance: BUPRENORPHINE
     Indication: PAIN
     Route: 002
     Dates: start: 20210303, end: 20210317
  5. PREDNISONE. [Concomitant]
     Active Substance: PREDNISONE
     Indication: CARDIOPULMONARY BYPASS
     Dosage: UNKNOWN
     Route: 048
  6. GABAPENTIN. [Concomitant]
     Active Substance: GABAPENTIN
     Indication: NEUROPATHY PERIPHERAL
     Route: 048
  7. LOSARTAN. [Concomitant]
     Active Substance: LOSARTAN
     Indication: ARTERIOSCLEROSIS
  8. LOSARTAN. [Concomitant]
     Active Substance: LOSARTAN
     Indication: CARDIOPULMONARY BYPASS
     Dosage: UNKNOWN, UNKNOWN
     Route: 048
  9. PREDNISONE. [Concomitant]
     Active Substance: PREDNISONE
     Indication: ARTERIOSCLEROSIS

REACTIONS (6)
  - Pancreatitis [Recovering/Resolving]
  - Pain in jaw [Recovered/Resolved]
  - Neck pain [Recovered/Resolved]
  - Abdominal discomfort [Recovered/Resolved]
  - Swelling face [Recovered/Resolved]
  - Pharyngeal swelling [Recovered/Resolved]

NARRATIVE: CASE EVENT DATE: 202103
